FAERS Safety Report 6910077-7 (Version None)
Quarter: 2010Q3

REPORT INFORMATION
  Report Type: 
  Country: None (occurrence: None)
  Receive Date: 20100806
  Receipt Date: 20100804
  Transmission Date: 20110219
  Serious: Yes (Other)
  Sender: FDA-Public Use
  Company Number: US-BAXTER-2010BH013232

PATIENT
  Age: 68 Year
  Sex: Male
  Weight: 79 kg

DRUGS (20)
  1. GAMMAGARD S/D [Suspect]
     Indication: MULTIFOCAL MOTOR NEUROPATHY
     Route: 042
     Dates: start: 20100317, end: 20100317
  2. GAMMAGARD S/D [Suspect]
     Indication: OFF LABEL USE
     Route: 042
     Dates: start: 20100317, end: 20100317
  3. GAMMAGARD S/D [Suspect]
     Route: 042
     Dates: start: 20100414, end: 20100414
  4. GAMMAGARD S/D [Suspect]
     Route: 042
     Dates: start: 20100414, end: 20100414
  5. GAMMAGARD S/D [Suspect]
     Route: 042
     Dates: start: 20100616, end: 20100616
  6. GAMMAGARD S/D [Suspect]
     Route: 042
     Dates: start: 20100616, end: 20100616
  7. GAMMAGARD S/D [Suspect]
     Route: 042
     Dates: start: 20100512, end: 20100512
  8. GAMMAGARD S/D [Suspect]
     Route: 042
     Dates: start: 20100512, end: 20100512
  9. PRILOSEC [Concomitant]
     Route: 048
     Dates: start: 20090313
  10. FLUOCINOLONE ACETONIDE [Concomitant]
     Indication: CUTANEOUS LUPUS ERYTHEMATOSUS
     Route: 061
     Dates: start: 20080814
  11. ROSUVASTATIN [Concomitant]
     Route: 048
     Dates: start: 20090609
  12. PREDNISONE [Concomitant]
     Indication: PREMEDICATION
     Route: 048
     Dates: start: 20100616, end: 20100616
  13. BUSPAR [Concomitant]
     Dates: start: 20090729
  14. RISEDRONATE SODIUM [Concomitant]
     Route: 048
     Dates: start: 20091229
  15. NITROSTAT [Concomitant]
     Route: 060
     Dates: start: 20090228
  16. PLAVIX [Concomitant]
     Route: 048
     Dates: start: 20090609
  17. TOPROL-XL [Concomitant]
     Route: 048
     Dates: start: 20090729
  18. CAL-500 [Concomitant]
     Route: 048
  19. CYANOCOBALAMIN [Concomitant]
     Route: 048
     Dates: start: 20071105
  20. ASPIRINE [Concomitant]
     Route: 048
     Dates: start: 20071030

REACTIONS (4)
  - BACK PAIN [None]
  - MUSCULOSKELETAL PAIN [None]
  - PAIN IN EXTREMITY [None]
  - URINARY TRACT INFLAMMATION [None]
